FAERS Safety Report 25359120 (Version 3)
Quarter: 2025Q3

REPORT INFORMATION
  Report Type: Report from Study
  Country: US (occurrence: US)
  Receive Date: 20250526
  Receipt Date: 20250714
  Transmission Date: 20251020
  Serious: Yes (Other)
  Sender: MALLINCKRODT
  Company Number: US-MALLINCKRODT-MNK202502958

PATIENT
  Age: 42 Year
  Sex: Male
  Weight: 170 kg

DRUGS (3)
  1. CORTICOTROPIN [Suspect]
     Active Substance: CORTICOTROPIN
     Indication: Polymyositis
     Route: 058
     Dates: start: 20250512
  2. PREDNISONE [Concomitant]
     Active Substance: PREDNISONE
  3. HUMAN IMMUNOGLOBULIN G [Concomitant]
     Active Substance: HUMAN IMMUNOGLOBULIN G

REACTIONS (5)
  - Multiple sclerosis [Unknown]
  - Amyotrophic lateral sclerosis [Unknown]
  - Injection site mass [Recovered/Resolved]
  - Injection site discolouration [Unknown]
  - Wrong technique in device usage process [Unknown]

NARRATIVE: CASE EVENT DATE: 20250501
